FAERS Safety Report 24389258 (Version 2)
Quarter: 2024Q4

REPORT INFORMATION
  Report Type: Report from Study
  Country: JP (occurrence: JP)
  Receive Date: 20241003
  Receipt Date: 20241101
  Transmission Date: 20250115
  Serious: Yes (Death, Other)
  Sender: ABBVIE
  Company Number: JP-TAKEDA-2024TJP014162

PATIENT
  Age: 70 Year
  Sex: Male
  Weight: 57.6 kg

DRUGS (8)
  1. LEUPROLIDE ACETATE [Suspect]
     Active Substance: LEUPROLIDE ACETATE
     Indication: Bulbospinal muscular atrophy congenital
     Dosage: 11.25 MILLIGRAM, Q3MONTHS
     Route: 058
     Dates: start: 20180221, end: 20210212
  2. AMBROXOL HYDROCHLORIDE [Concomitant]
     Active Substance: AMBROXOL HYDROCHLORIDE
     Indication: Bronchitis chronic
     Dosage: 45 MILLIGRAM, DOSE FORM: UNKNOWN
     Route: 065
     Dates: end: 20210228
  3. JUVELA [Concomitant]
     Active Substance: .ALPHA.-TOCOPHEROL\RETINOL
     Indication: Product used for unknown indication
     Dosage: 600 MILLIGRAM, DOSE FORM: UNKNOWN
     Route: 065
     Dates: end: 20210228
  4. POTASSIUM ASPARTATE [Concomitant]
     Active Substance: POTASSIUM ASPARTATE
     Indication: Product used for unknown indication
     Dosage: 900 MILLIGRAM, DOSE FORM: UNKNOWN
     Route: 065
     Dates: end: 20210228
  5. SYMBICORT [Concomitant]
     Active Substance: BUDESONIDE\FORMOTEROL FUMARATE DIHYDRATE
     Indication: Bronchitis chronic
     Dosage: 2 DOSAGE FORM, BID, DOSE FORM: UNKNOWN
     Route: 050
     Dates: end: 20210228
  6. SHAKUYAKUKANZOTO [Concomitant]
     Active Substance: HERBALS
     Indication: Myalgia
     Dosage: 8 GRAM, DOSE FORM: UNKNOWN
     Route: 065
     Dates: end: 20200827
  7. AMITRIPTYLINE [Concomitant]
     Active Substance: AMITRIPTYLINE
     Indication: Product used for unknown indication
     Dosage: 10 MILLIGRAM, DOSE FORM: UNKNOWN
     Route: 065
     Dates: end: 20210228
  8. ERYTHROCIN [Concomitant]
     Active Substance: ERYTHROMYCIN LACTOBIONATE
     Indication: Bronchitis chronic
     Dosage: 400 MILLIGRAM, DOSE FORM: UNKNOWN
     Route: 065
     Dates: end: 20210228

REACTIONS (3)
  - Respiratory failure [Fatal]
  - Pneumonia [Fatal]
  - Atelectasis [Fatal]

NARRATIVE: CASE EVENT DATE: 20210301
